FAERS Safety Report 7410725-1 (Version None)
Quarter: 2011Q1

REPORT INFORMATION
  Report Type: 
  Country: None (occurrence: None)
  Receive Date: 20110328
  Receipt Date: 20110328
  Transmission Date: 20110831
  Serious: Yes (Death, Life-Threatening, Hospitalization, Disabling, Congenital Anomaly, Other)
  Sender: FDA-Public Use
  Company Number: None

PATIENT
  Age: 28 Year
  Sex: Male
  Weight: 99.7913 kg

DRUGS (1)
  1. ALCOHOL PADS [Suspect]

REACTIONS (6)
  - INTESTINAL PERFORATION [None]
  - SHOCK [None]
  - BLOOD PRESSURE DECREASED [None]
  - CARDIAC ARREST [None]
  - APPLICATION SITE INFECTION [None]
  - PRODUCT QUALITY ISSUE [None]
